FAERS Safety Report 7277226-5 (Version None)
Quarter: 2011Q1

REPORT INFORMATION
  Report Type: 
  Country: None (occurrence: None)
  Receive Date: 20110202
  Receipt Date: 20110202
  Transmission Date: 20110831
  Serious: Yes (Hospitalization, Other)
  Sender: FDA-Public Use
  Company Number: None

PATIENT
  Sex: Male
  Weight: 82.8 kg

DRUGS (1)
  1. IFOSFAMIDE [Suspect]
     Indication: RHABDOMYOSARCOMA
     Dosage: 6 GM -3 GM/M2- DAILY X3 IV DRIP
     Route: 041
     Dates: start: 20101216, end: 20101218

REACTIONS (2)
  - CARDIO-RESPIRATORY ARREST [None]
  - TOXIC ENCEPHALOPATHY [None]
